FAERS Safety Report 6253379-2 (Version None)
Quarter: 2009Q3

REPORT INFORMATION
  Report Type: 
  Country: None (occurrence: None)
  Receive Date: 20090701
  Receipt Date: 20090626
  Transmission Date: 20100115
  Serious: Yes (Death)
  Sender: FDA-Public Use
  Company Number: PHHY2009CA24865

PATIENT
  Sex: Female

DRUGS (4)
  1. CLOZARIL [Suspect]
     Indication: SCHIZOPHRENIA
     Dosage: 600 MG/DAY
     Route: 048
     Dates: start: 20061025
  2. DITROPAN [Concomitant]
     Dosage: 15 MG, QHS
  3. DETROL [Concomitant]
     Dosage: 2 MG, QHS
  4. FERROUS SULFATE TAB [Concomitant]
     Dosage: 300 MG, BID

REACTIONS (3)
  - COMPLETED SUICIDE [None]
  - MALAISE [None]
  - TREATMENT NONCOMPLIANCE [None]
